FAERS Safety Report 12960109 (Version 2)
Quarter: 2016Q4

REPORT INFORMATION
  Report Type: Spontaneous
  Country: JP (occurrence: JP)
  Receive Date: 20161121
  Receipt Date: 20161201
  Transmission Date: 20170207
  Serious: Yes (Other)
  Sender: FDA-Public Use
  Company Number: JP-BAYER-2016-217443

PATIENT
  Weight: 1.65 kg

DRUGS (2)
  1. SAIREI-TO [Concomitant]
     Active Substance: UNSPECIFIED INGREDIENT
     Dosage: UNK
     Route: 064
  2. ACETYLSALICYLIC ACID({=100 MG) [Suspect]
     Active Substance: ASPIRIN
     Dosage: UNK
     Route: 064

REACTIONS (4)
  - Low birth weight baby [None]
  - Premature baby [None]
  - Foetal distress syndrome [None]
  - Foetal exposure timing unspecified [None]
